FAERS Safety Report 6048395-X (Version None)
Quarter: 2009Q1

REPORT INFORMATION
  Report Type: 
  Country: None (occurrence: None)
  Receive Date: 20090123
  Receipt Date: 20090116
  Transmission Date: 20090719
  Serious: Yes (Hospitalization)
  Sender: FDA-Public Use
  Company Number: A0735358A

PATIENT
  Age: 40 Year
  Sex: Male
  Weight: 141.8 kg

DRUGS (5)
  1. AVANDIA [Suspect]
     Dosage: 8MG PER DAY
     Route: 048
     Dates: start: 19990501, end: 20060413
  2. GLUCOPHAGE [Concomitant]
  3. METFORMIN [Concomitant]
  4. INSULIN [Concomitant]
  5. LIPITOR [Concomitant]

REACTIONS (1)
  - MYOCARDIAL INFARCTION [None]
